FAERS Safety Report 25471421 (Version 1)
Quarter: 2025Q2

REPORT INFORMATION
  Report Type: Spontaneous
  Country: US (occurrence: US)
  Receive Date: 20250624
  Receipt Date: 20250624
  Transmission Date: 20250717
  Serious: No
  Sender: STRIDES
  Company Number: US-STRIDES ARCOLAB LIMITED-2025SP007428

PATIENT
  Age: 27 Year
  Sex: Female

DRUGS (12)
  1. FLUOXETINE [Suspect]
     Active Substance: FLUOXETINE HYDROCHLORIDE
     Indication: Depression
     Route: 065
  2. FLUOXETINE [Suspect]
     Active Substance: FLUOXETINE HYDROCHLORIDE
     Route: 065
  3. BUPROPION [Suspect]
     Active Substance: BUPROPION
     Indication: Depression
     Route: 065
  4. BUPROPION [Suspect]
     Active Substance: BUPROPION
     Route: 065
  5. LITHIUM [Suspect]
     Active Substance: LITHIUM
     Indication: Depression
     Route: 065
  6. LITHIUM [Suspect]
     Active Substance: LITHIUM
     Route: 065
  7. LITHIUM [Suspect]
     Active Substance: LITHIUM
     Route: 065
  8. PRAZOSIN [Suspect]
     Active Substance: PRAZOSIN
     Indication: Nightmare
     Route: 065
  9. PRAZOSIN [Suspect]
     Active Substance: PRAZOSIN
     Indication: Depression
  10. KETAMINE [Suspect]
     Active Substance: KETAMINE
     Indication: Depression
     Route: 042
  11. ESKETAMINE [Suspect]
     Active Substance: ESKETAMINE
     Indication: Depression
     Route: 045
  12. LAMOTRIGINE [Suspect]
     Active Substance: LAMOTRIGINE
     Indication: Product used for unknown indication
     Route: 065

REACTIONS (1)
  - Maternal exposure during pregnancy [Unknown]
